FAERS Safety Report 14011943 (Version 3)
Quarter: 2017Q4

REPORT INFORMATION
  Report Type: Report from Study
  Country: CO (occurrence: CO)
  Receive Date: 20170926
  Receipt Date: 20171003
  Transmission Date: 20180321
  Serious: Yes (Other)
  Sender: FDA-Public Use
  Company Number: CO-JNJFOC-20170827629

PATIENT
  Age: 69 Year
  Sex: Female
  Weight: 85 kg

DRUGS (3)
  1. METHOTREXATE. [Concomitant]
     Active Substance: METHOTREXATE
     Route: 065
  2. CALCIUM [Concomitant]
     Active Substance: CALCIUM
     Route: 065
  3. SIMPONI [Suspect]
     Active Substance: GOLIMUMAB
     Indication: RHEUMATOID ARTHRITIS
     Route: 058
     Dates: start: 20170601, end: 20170731

REACTIONS (5)
  - Erysipelas [Recovered/Resolved]
  - Alopecia [Recovering/Resolving]
  - Arthritis [Unknown]
  - Drug ineffective [Unknown]
  - Arthralgia [Unknown]

NARRATIVE: CASE EVENT DATE: 2017
